FAERS Safety Report 19762759 (Version 1)
Quarter: 2021Q3

REPORT INFORMATION
  Report Type: Spontaneous
  Country: PL (occurrence: PL)
  Receive Date: 20210830
  Receipt Date: 20210830
  Transmission Date: 20211014
  Serious: Yes (Other)
  Sender: FDA-Public Use
  Company Number: PL-RECORDATI-2021003060

PATIENT

DRUGS (3)
  1. UNSPECIFIED DACTINOMYCIN [Suspect]
     Active Substance: DACTINOMYCIN
     Indication: NEPHROBLASTOMA
     Dosage: UNK
  2. VINCRISTINE SULFATE. [Suspect]
     Active Substance: VINCRISTINE SULFATE
     Indication: NEPHROBLASTOMA
     Dosage: UNK
  3. CAELYX [Suspect]
     Active Substance: DOXORUBICIN HYDROCHLORIDE
     Indication: NEPHROBLASTOMA
     Dosage: UNK

REACTIONS (7)
  - Gait disturbance [Unknown]
  - Horner^s syndrome [Unknown]
  - Muscular weakness [Unknown]
  - Pancreatitis [Unknown]
  - Polyneuropathy [Unknown]
  - Cholecystitis acute [Unknown]
  - Drug ineffective [Recovered/Resolved]
